FAERS Safety Report 7539085-2 (Version None)
Quarter: 2011Q2

REPORT INFORMATION
  Report Type: 
  Country: None (occurrence: None)
  Receive Date: 20110610
  Receipt Date: 20020102
  Transmission Date: 20111010
  Serious: Yes (Life-Threatening, Hospitalization)
  Sender: FDA-Public Use
  Company Number: PHEH2001US09029

PATIENT
  Sex: Male

DRUGS (1)
  1. CLOZAPINE [Suspect]
     Indication: SCHIZOPHRENIA
     Dosage: 675MG DAILY
     Route: 048
     Dates: start: 19920903, end: 20010921

REACTIONS (4)
  - METASTASIS [None]
  - NEUTROPENIA [None]
  - LYMPHOMA [None]
  - LEUKOPENIA [None]
